FAERS Safety Report 9723043 (Version 1)
Quarter: 2013Q4

REPORT INFORMATION
  Report Type: Spontaneous
  Country: US (occurrence: None)
  Receive Date: 20131127
  Receipt Date: 20131127
  Transmission Date: 20140711
  Serious: Yes (Other)
  Sender: FDA-Public Use
  Company Number: None

PATIENT
  Age: 68 Year
  Sex: Female
  Weight: 101.15 kg

DRUGS (15)
  1. XARELTO 20 MG [Suspect]
     Indication: ATRIAL FIBRILLATION
     Dosage: 20 MG, QD, ORAL
     Route: 048
     Dates: start: 20131121, end: 20131122
  2. GAVISCON LIQUID [Concomitant]
  3. GABAPENTIN [Concomitant]
  4. SPIRIVA [Concomitant]
  5. SERTRALINE [Concomitant]
  6. PRAVASTATIN [Concomitant]
  7. METOPROLOL TARTRATE [Concomitant]
  8. LISINOPRIL [Concomitant]
  9. FUROSEMIDE [Concomitant]
  10. VITAMIN D [Concomitant]
  11. CROMOLYN [Concomitant]
  12. ASPIRIN EC 81 MG [Concomitant]
  13. MUCINEX [Concomitant]
  14. ADVAIR [Concomitant]
  15. VENTOLIN [Concomitant]

REACTIONS (2)
  - Blood urine present [None]
  - International normalised ratio increased [None]
